FAERS Safety Report 9109025 (Version 2)
Quarter: 2013Q2

REPORT INFORMATION
  Report Type: Spontaneous
  Country: US (occurrence: US)
  Receive Date: 20130222
  Receipt Date: 20130401
  Transmission Date: 20140414
  Serious: Yes (Other)
  Sender: FDA-Public Use
  Company Number: US-GLAXOSMITHKLINE-A1004067A

PATIENT
  Age: 12 Year
  Sex: Female

DRUGS (4)
  1. LAMICTAL [Suspect]
     Indication: PETIT MAL EPILEPSY
     Dosage: 50MG PER DAY
     Route: 048
     Dates: start: 20121115, end: 20121126
  2. POTIGA [Suspect]
     Indication: CONVULSION
     Dosage: 100MG THREE TIMES PER DAY
     Route: 048
     Dates: start: 20130321
  3. KEPPRA [Concomitant]
  4. TEGRETOL [Concomitant]

REACTIONS (3)
  - Hypersensitivity [Recovering/Resolving]
  - Urticaria [Recovering/Resolving]
  - Off label use [Unknown]
